FAERS Safety Report 10224517 (Version 1)
Quarter: 2014Q2

REPORT INFORMATION
  Report Type: Spontaneous
  Country: US (occurrence: US)
  Receive Date: 20140609
  Receipt Date: 20140609
  Transmission Date: 20141212
  Serious: No
  Sender: FDA-Public Use
  Company Number: US-B.I. PHARMACEUTICALS,INC./RIDGEFIELD-2014-BI-23725BP

PATIENT
  Age: 76 Year
  Sex: Female
  Weight: 77 kg

DRUGS (10)
  1. PRADAXA [Suspect]
     Indication: ATRIAL FIBRILLATION
     Dosage: 300 MG
     Route: 048
  2. PRADAXA [Suspect]
     Indication: MITRAL VALVE PROLAPSE
  3. ATENOLOL [Concomitant]
     Indication: HYPERTENSION
     Dosage: 50 MG
     Route: 048
  4. LEVOTHYROXINE [Concomitant]
     Indication: HYPOTHYROIDISM
     Dosage: 25 MCG
     Route: 048
  5. LEVOTHYROXINE [Concomitant]
     Dosage: 50 MCG
     Route: 048
  6. DIGOXIN [Concomitant]
     Indication: HEART RATE IRREGULAR
     Dosage: 0.125 MG
     Route: 048
  7. DIGOXIN [Concomitant]
     Indication: MITRAL VALVE PROLAPSE
  8. DIOVAN HCT [Concomitant]
     Indication: HYPERTENSION
     Dosage: STRENGTH: 320-25 MG; DAILY DOSE: 320-25 MG
     Route: 048
  9. PREDNISONE [Concomitant]
     Indication: MYASTHENIA GRAVIS
     Dosage: 10 MG
     Route: 048
  10. LIPITOR [Concomitant]
     Indication: BLOOD CHOLESTEROL INCREASED
     Route: 048

REACTIONS (2)
  - Arthritis [Not Recovered/Not Resolved]
  - Off label use [Not Recovered/Not Resolved]
